FAERS Safety Report 9041128 (Version 1)
Quarter: 2013Q1

REPORT INFORMATION
  Report Type: Spontaneous
  Country: US (occurrence: None)
  Receive Date: 20130124
  Receipt Date: 20130124
  Transmission Date: 20140127
  Serious: Yes (Other)
  Sender: FDA-Public Use
  Company Number: None

PATIENT
  Sex: Female
  Weight: 54.43 kg

DRUGS (1)
  1. FORTEO - ELI LILLY + CO. [Suspect]
     Indication: OSTEOPOROSIS
     Dosage: 20MCG  DAILY  INJECTION
     Dates: start: 20120601, end: 20120925

REACTIONS (4)
  - Pain [None]
  - General physical health deterioration [None]
  - Spinal pain [None]
  - Gait disturbance [None]
